FAERS Safety Report 9031910 (Version 1)
Quarter: 2013Q1

REPORT INFORMATION
  Report Type: Spontaneous
  Country: FR (occurrence: FR)
  Receive Date: 20130125
  Receipt Date: 20130125
  Transmission Date: 20140127
  Serious: Yes (Hospitalization)
  Sender: FDA-Public Use
  Company Number: FR-BRISTOL-MYERS SQUIBB COMPANY-17295270

PATIENT
  Age: 53 Year
  Sex: Male

DRUGS (9)
  1. REYATAZ CAPS [Suspect]
     Indication: HIV INFECTION
     Route: 048
     Dates: start: 20051205
  2. VIDEX [Suspect]
     Indication: HIV INFECTION
     Route: 048
     Dates: start: 20001121, end: 20060522
  3. NORVIR [Suspect]
     Indication: HIV INFECTION
     Dates: start: 20051205
  4. ZIAGEN [Suspect]
     Indication: HIV INFECTION
     Route: 048
     Dates: start: 20010723
  5. TAHOR [Concomitant]
  6. KARDEGIC [Concomitant]
  7. EFIENT [Concomitant]
  8. ATENOLOL [Concomitant]
     Dosage: 1DF= 50 MG, 25 MG DAILY THE MORNING
  9. RAMIPRIL [Concomitant]

REACTIONS (3)
  - Myocardial infarction [Recovered/Resolved with Sequelae]
  - Cardiovascular disorder [None]
  - Obstruction [None]
